FAERS Safety Report 14161252 (Version 5)
Quarter: 2018Q1

REPORT INFORMATION
  Report Type: Report from Study
  Country: CA (occurrence: CA)
  Receive Date: 20171106
  Receipt Date: 20180205
  Transmission Date: 20180508
  Serious: Yes (Other)
  Sender: FDA-Public Use
  Company Number: CA-GLAXOSMITHKLINE-CA2017GSK078566

PATIENT
  Age: 70 Year
  Sex: Female

DRUGS (7)
  1. MEPOLIZUMAB [Suspect]
     Active Substance: MEPOLIZUMAB
     Indication: ASTHMA
     Dosage: 100 MG, MONTHLY
     Route: 042
     Dates: start: 20170413
  2. MEPOLIZUMAB [Suspect]
     Active Substance: MEPOLIZUMAB
     Dosage: 100 MG, Z
     Route: 042
     Dates: start: 20171228
  3. MEPOLIZUMAB [Suspect]
     Active Substance: MEPOLIZUMAB
     Dosage: 100 MG, Z
     Route: 042
  4. MEPOLIZUMAB [Suspect]
     Active Substance: MEPOLIZUMAB
     Dosage: 100 MG, Z
     Route: 042
  5. MEPOLIZUMAB [Suspect]
     Active Substance: MEPOLIZUMAB
     Dosage: 100 MG, Z
     Route: 042
  6. MEPOLIZUMAB [Suspect]
     Active Substance: MEPOLIZUMAB
     Dosage: 100 MG, Z
     Route: 042
  7. MEPOLIZUMAB [Suspect]
     Active Substance: MEPOLIZUMAB
     Dosage: 100 MG, Z
     Route: 042
     Dates: start: 20171130

REACTIONS (12)
  - Dyspnoea exertional [Unknown]
  - Pain [Recovered/Resolved]
  - Rash [Unknown]
  - Blood pressure increased [Unknown]
  - Headache [Recovered/Resolved]
  - Heart rate increased [Unknown]
  - Limb injury [Unknown]
  - Cystitis [Recovering/Resolving]
  - Cough [Unknown]
  - Vomiting [Unknown]
  - Wound infection [Unknown]
  - Asthma [Recovered/Resolved]

NARRATIVE: CASE EVENT DATE: 20170419
